FAERS Safety Report 9649619 (Version 3)
Quarter: 2013Q4

REPORT INFORMATION
  Report Type: Spontaneous
  Country: JP (occurrence: JP)
  Receive Date: 20131028
  Receipt Date: 20131202
  Transmission Date: 20140711
  Serious: Yes (Hospitalization)
  Sender: FDA-Public Use
  Company Number: JP-B.I. PHARMACEUTICALS,INC./RIDGEFIELD-2013-BI-33594NB

PATIENT
  Age: 74 Year
  Sex: Female

DRUGS (4)
  1. TRAZENTA [Suspect]
     Indication: DIABETES MELLITUS
     Dosage: 5 MG
     Route: 048
     Dates: start: 20130926, end: 20130926
  2. SEIBULE / MIGLITOL [Concomitant]
     Indication: DIABETES MELLITUS
     Dosage: 150 MG
     Route: 065
  3. PREDONINE / PREDNISOLONE [Concomitant]
     Indication: SCLERODERMA
     Dosage: 10 MG
     Route: 065
  4. ADRENAL HORMONE PREPARATIONS [Concomitant]
     Indication: SERONEGATIVE ARTHRITIS
     Route: 065

REACTIONS (1)
  - Palpitations [Recovered/Resolved]
